FAERS Safety Report 23878452 (Version 1)
Quarter: 2024Q2

REPORT INFORMATION
  Report Type: Spontaneous
  Country: FR (occurrence: FR)
  Receive Date: 20240521
  Receipt Date: 20240521
  Transmission Date: 20240716
  Serious: Yes (Other)
  Sender: FDA-Public Use
  Company Number: None

PATIENT
  Age: 56 Year
  Sex: Male
  Weight: 70 kg

DRUGS (3)
  1. PEMETREXED [Suspect]
     Active Substance: PEMETREXED
     Indication: Lung adenocarcinoma recurrent
     Dosage: 500 MG/M2 SOIT 950 MG A LA 1ERE CURE, PUIS 700 MG AUX 2EME ET 3EME CURE
     Dates: start: 20230821, end: 20231012
  2. PEMBROLIZUMAB [Suspect]
     Active Substance: PEMBROLIZUMAB
     Indication: Lung adenocarcinoma recurrent
     Dosage: 500 MG/M2 SOIT 950 MG A LA 1ERE CURE, PUIS 700 MG AUX 2EME ET 3EME CURE
     Dates: start: 20230821, end: 20231012
  3. CARBOPLATIN [Suspect]
     Active Substance: CARBOPLATIN
     Indication: Lung adenocarcinoma recurrent
     Dosage: 500 MG/M2 SOIT 950 MG A LA 1ERE CURE, PUIS 700 MG AUX 2EME ET 3EME CURE
     Dates: start: 20230821, end: 20231012

REACTIONS (2)
  - Neutropenia [Not Recovered/Not Resolved]
  - Thrombocytopenia [Not Recovered/Not Resolved]

NARRATIVE: CASE EVENT DATE: 20231024
